FAERS Safety Report 9447852 (Version 1)
Quarter: 2013Q3

REPORT INFORMATION
  Report Type: Report from Study
  Country: US (occurrence: US)
  Receive Date: 20130808
  Receipt Date: 20130808
  Transmission Date: 20140515
  Serious: Yes (Other)
  Sender: FDA-Public Use
  Company Number: US-ROCHE-1241351

PATIENT
  Age: 58 Year
  Sex: Female

DRUGS (11)
  1. RITUXAN [Suspect]
     Indication: RHEUMATOID ARTHRITIS
     Route: 042
     Dates: start: 20130501
  2. RITUXAN [Suspect]
     Dosage: Q14DX2Q6 MO
     Route: 042
     Dates: start: 20130520
  3. ULTRAM ER [Concomitant]
     Indication: PAIN
     Route: 062
     Dates: start: 20130610
  4. SYNTHROID [Concomitant]
     Indication: HYPOTHYROIDISM
     Route: 048
  5. FOLIC ACID [Concomitant]
     Indication: RHEUMATOID ARTHRITIS
     Route: 065
  6. LASIX [Concomitant]
     Route: 065
  7. EFFEXOR [Concomitant]
     Route: 065
  8. TEMAZEPAM [Concomitant]
     Indication: SLEEP DISORDER
     Route: 065
  9. TRAZODONE [Concomitant]
     Route: 065
  10. PREDNISONE [Concomitant]
     Indication: RHEUMATOID ARTHRITIS
     Route: 048
  11. METHOTREXATE [Concomitant]
     Indication: RHEUMATOID ARTHRITIS
     Dosage: 8 PILLS
     Route: 048

REACTIONS (12)
  - Animal bite [Unknown]
  - Oropharyngeal pain [Recovered/Resolved]
  - Nausea [Unknown]
  - Arthralgia [Unknown]
  - Rheumatoid arthritis [Unknown]
  - Ear pain [Unknown]
  - Contusion [Unknown]
  - Toothache [Unknown]
  - White blood cell count increased [Unknown]
  - Abdominal discomfort [Not Recovered/Not Resolved]
  - Joint swelling [Unknown]
  - Carpal tunnel syndrome [Unknown]
